FAERS Safety Report 12983036 (Version 1)
Quarter: 2016Q4

REPORT INFORMATION
  Report Type: Spontaneous
  Country: US (occurrence: US)
  Receive Date: 20161129
  Receipt Date: 20161129
  Transmission Date: 20170207
  Serious: No
  Sender: FDA-Public Use
  Company Number: US-MALLINCKRODT-T201601874

PATIENT
  Sex: Female

DRUGS (3)
  1. FENTANYL TRANSDERMAL SYSTEM [Suspect]
     Active Substance: FENTANYL
     Indication: INTERVERTEBRAL DISC DEGENERATION
     Dosage: 25 MCG/HR ONE PATCH EVERY 3 DAYS
     Route: 062
     Dates: start: 201604
  2. FENTANYL TRANSDERMAL SYSTEM [Suspect]
     Active Substance: FENTANYL
     Indication: BACK PAIN
     Dosage: 12 MCG/HR ONE PATCH EVERY 3 DAYS
     Route: 062
     Dates: end: 201604
  3. OXYCONTIN [Concomitant]
     Active Substance: OXYCODONE HYDROCHLORIDE
     Dosage: TWO 20 MG AND TWO 10 MG, DAILY

REACTIONS (6)
  - Drug effect incomplete [Not Recovered/Not Resolved]
  - Incorrect drug administration duration [Recovered/Resolved]
  - Product adhesion issue [Not Recovered/Not Resolved]
  - Malaise [Unknown]
  - Urine abnormality [Unknown]
  - Drug ineffective [Not Recovered/Not Resolved]

NARRATIVE: CASE EVENT DATE: 2016
